FAERS Safety Report 6869272-8 (Version None)
Quarter: 2010Q3

REPORT INFORMATION
  Report Type: 
  Country: None (occurrence: None)
  Receive Date: 20100722
  Receipt Date: 20100722
  Transmission Date: 20110219
  Serious: No
  Sender: FDA-Public Use
  Company Number: None

PATIENT
  Age: 59 Year
  Sex: Male
  Weight: 149.687 kg

DRUGS (3)
  1. CEFTRIAXONE [Suspect]
     Indication: BACTERAEMIA
     Dosage: 2G QD IV PUSH
     Route: 042
     Dates: start: 20100714
  2. CEFTRIAXONE [Suspect]
     Indication: CELLULITIS
     Dosage: 2G QD IV PUSH
     Route: 042
     Dates: start: 20100714
  3. CEFTRIAXONE [Suspect]

REACTIONS (5)
  - INFUSION RELATED REACTION [None]
  - NAUSEA [None]
  - REFUSAL OF TREATMENT BY PATIENT [None]
  - RETCHING [None]
  - VOMITING [None]
